FAERS Safety Report 9160257 (Version 1)
Quarter: 2013Q1

REPORT INFORMATION
  Report Type: Spontaneous
  Country: US (occurrence: None)
  Receive Date: 20130220
  Receipt Date: 20130220
  Transmission Date: 20140127
  Serious: Yes (Life-Threatening, Hospitalization)
  Sender: FDA-Public Use
  Company Number: 2013P1002204

PATIENT
  Age: 67 Year
  Sex: Female

DRUGS (10)
  1. LIDOCAINE [Suspect]
     Indication: NECK PAIN
     Dosage: 3 ML; X1; ED
     Route: 008
  2. BETAMETHASONE [Suspect]
     Indication: NECK PAIN
     Dosage: 12 MG; X1; ED
     Route: 008
  3. MIDAZOLAM [Concomitant]
  4. FENTANYL IV [Concomitant]
  5. METHOTREXATE [Concomitant]
  6. ETANERCEPT [Concomitant]
  7. PREDNISONE [Concomitant]
  8. HYDROCODONE/ACETAMINOPHEN [Concomitant]
  9. IOHEXOL [Concomitant]
  10. FENTANYL TRANSDERMAL [Concomitant]

REACTIONS (14)
  - Cardio-respiratory arrest [None]
  - Foaming at mouth [None]
  - Unresponsive to stimuli [None]
  - Coma scale abnormal [None]
  - Hypertension [None]
  - Hyperthermia [None]
  - Electrocardiogram P pulmonale [None]
  - Ventricular extrasystoles [None]
  - Brain injury [None]
  - Cerebral hypoperfusion [None]
  - Anaemia [None]
  - Respiratory alkalosis [None]
  - Pneumocephalus [None]
  - Cardiac stress test abnormal [None]
